FAERS Safety Report 24679953 (Version 1)
Quarter: 2024Q4

REPORT INFORMATION
  Report Type: Spontaneous
  Country: MX (occurrence: MX)
  Receive Date: 20241129
  Receipt Date: 20241129
  Transmission Date: 20250114
  Serious: Yes (Hospitalization)
  Sender: RECORDATI
  Company Number: MX-ORPHANEU-2024009379

PATIENT

DRUGS (10)
  1. CARBAGLU [Suspect]
     Active Substance: CARGLUMIC ACID
     Indication: Carnitine palmitoyltransferase deficiency
     Dosage: UNK
     Route: 048
     Dates: start: 20241025, end: 20241101
  2. CARBAGLU [Suspect]
     Active Substance: CARGLUMIC ACID
     Indication: Off label use
  3. CARBAGLU [Suspect]
     Active Substance: CARGLUMIC ACID
     Indication: Hyperammonaemia
  4. VITAMIN B COMPLEX [Concomitant]
     Active Substance: CYANOCOBALAMIN\DEXPANTHENOL\NIACINAMIDE\PYRIDOXINE HYDROCHLORIDE\RIBOFLAVIN 5^-PHOSPHATE SODIUM\THIA
     Indication: Carnitine palmitoyltransferase deficiency
     Dosage: 1000 MICROGRAM EVERY 72 HR
     Route: 048
     Dates: start: 20241025
  5. HYDROCHLOROTHIAZIDE [Concomitant]
     Active Substance: HYDROCHLOROTHIAZIDE
     Indication: Product used for unknown indication
     Dosage: UNK, Q12H
     Route: 048
  6. SPIRONOLACTONE [Concomitant]
     Active Substance: SPIRONOLACTONE
     Indication: Product used for unknown indication
     Dosage: UNK
  7. ASPIRIN [Concomitant]
     Active Substance: ASPIRIN
     Indication: Product used for unknown indication
     Dosage: UNK
  8. FOLIC ACID [Concomitant]
     Active Substance: FOLIC ACID
     Indication: Product used for unknown indication
  9. FERROUS SULFATE [Concomitant]
     Active Substance: FERROUS SULFATE
     Indication: Product used for unknown indication
     Dosage: 1 GRAM, QD (EVERY 24HRS)
     Route: 048
  10. LEVOCARNITINE [Concomitant]
     Active Substance: LEVOCARNITINE
     Indication: Carnitine palmitoyltransferase deficiency
     Dosage: 150 MILLIGRAM, Q8H
     Route: 048
     Dates: start: 20241025

REACTIONS (3)
  - Diarrhoea [Recovered/Resolved]
  - Cholelithiasis [Unknown]
  - Off label use [Recovered/Resolved]

NARRATIVE: CASE EVENT DATE: 20240101
